FAERS Safety Report 8983199 (Version 2)
Quarter: 2013Q1

REPORT INFORMATION
  Report Type: Spontaneous
  Country: US (occurrence: US)
  Receive Date: 20121224
  Receipt Date: 20130128
  Transmission Date: 20140127
  Serious: Yes (Other)
  Sender: FDA-Public Use
  Company Number: PHEH2012US025048

PATIENT
  Sex: Female

DRUGS (1)
  1. GLEEVEC [Suspect]
     Dosage: 400 MG DAILY
     Route: 048

REACTIONS (3)
  - Fall [Unknown]
  - Fracture [Unknown]
  - Accident [Unknown]
